FAERS Safety Report 15409167 (Version 1)
Quarter: 2018Q3

REPORT INFORMATION
  Report Type: Other
  Country: US (occurrence: US)
  Receive Date: 20180920
  Receipt Date: 20180920
  Transmission Date: 20181010
  Serious: No
  Sender: FDA-Public Use
  Company Number: US-LEADIANT BIOSCIENCES INC-2017STPI000951

PATIENT
  Sex: Male

DRUGS (1)
  1. MATULANE [Suspect]
     Active Substance: PROCARBAZINE HYDROCHLORIDE
     Indication: NEOPLASM MALIGNANT
     Dosage: 150 MG, QD ON DAYS 8?21 OF CYCLE
     Route: 048
     Dates: start: 20171024

REACTIONS (2)
  - Fatigue [Unknown]
  - Dehydration [Unknown]
